FAERS Safety Report 6381689-7 (Version None)
Quarter: 2009Q3

REPORT INFORMATION
  Report Type: 
  Country: None (occurrence: None)
  Receive Date: 20090930
  Receipt Date: 20090917
  Transmission Date: 20100115
  Serious: Yes (Other)
  Sender: FDA-Public Use
  Company Number: PHHY2009FR27378

PATIENT
  Age: 85 Year
  Sex: Male

DRUGS (5)
  1. COMTAN [Suspect]
     Indication: PARKINSON'S DISEASE
     Dosage: 800 MG/DAY
     Route: 048
     Dates: start: 20090521
  2. MADOPAR CR [Concomitant]
     Dosage: 100/25 MG
     Route: 048
  3. RISORDAN [Concomitant]
  4. FELODIPINE [Concomitant]
  5. EUPRESSYL [Concomitant]
     Dosage: 1 DF, QD

REACTIONS (3)
  - ASTHENIA [None]
  - DECREASED APPETITE [None]
  - WEIGHT DECREASED [None]
